FAERS Safety Report 16107042 (Version 1)
Quarter: 2019Q1

REPORT INFORMATION
  Report Type: Spontaneous
  Country: US (occurrence: US)
  Receive Date: 20190322
  Receipt Date: 20190322
  Transmission Date: 20190418
  Serious: Yes (Hospitalization)
  Sender: FDA-Public Use
  Company Number: US-PFIZER INC-2019122188

PATIENT
  Age: 61 Year
  Sex: Male
  Weight: 113 kg

DRUGS (1)
  1. GABAPENTIN. [Suspect]
     Active Substance: GABAPENTIN
     Indication: CHRONIC INFLAMMATORY DEMYELINATING POLYRADICULONEUROPATHY
     Dosage: UNK

REACTIONS (8)
  - Vomiting [Unknown]
  - Vertigo [Unknown]
  - Headache [Recovering/Resolving]
  - Gait inability [Unknown]
  - Feeling hot [Unknown]
  - Product use in unapproved indication [Unknown]
  - Musculoskeletal pain [Not Recovered/Not Resolved]
  - Cerebrovascular accident [Unknown]
